FAERS Safety Report 24047250 (Version 1)
Quarter: 2024Q3

REPORT INFORMATION
  Report Type: Spontaneous
  Country: AR (occurrence: AR)
  Receive Date: 20240703
  Receipt Date: 20240703
  Transmission Date: 20241016
  Serious: Yes (Life-Threatening, Hospitalization)
  Sender: PERRIGO
  Company Number: AR-MLMSERVICE-20240624-PI110345-00029-1

PATIENT
  Age: 28 Year
  Sex: Female

DRUGS (5)
  1. ACETAMINOPHEN [Suspect]
     Active Substance: ACETAMINOPHEN
     Indication: Product used for unknown indication
     Dosage: THE APPROXIMATE ESTIMATE, THE DOSE INGESTED WAS 20 GRAMS ON THE PREVIOUS DAY AND 10 GRAMS ON THE SAM
     Route: 048
  2. SERTRALINE [Concomitant]
     Active Substance: SERTRALINE HYDROCHLORIDE
     Indication: Major depression
     Dosage: UNKNOWN, UNKNOWN
     Route: 065
  3. QUETIAPINE [Concomitant]
     Active Substance: QUETIAPINE
     Indication: Major depression
     Dosage: UNKNOWN, UNKNOWN
     Route: 065
  4. CLONAZEPAM [Concomitant]
     Active Substance: CLONAZEPAM
     Indication: Major depression
     Dosage: UNKNOWN, UNKNOWN
     Route: 065
  5. RISPERIDONE [Concomitant]
     Active Substance: RISPERIDONE
     Indication: Major depression
     Dosage: UNKNOWN, UNKNOWN
     Route: 065

REACTIONS (10)
  - Seizure [Recovered/Resolved]
  - Intentional overdose [Recovered/Resolved]
  - Encephalopathy [Recovered/Resolved]
  - Staphylococcal infection [Recovered/Resolved]
  - Metabolic acidosis [Recovered/Resolved]
  - Oliguria [Recovered/Resolved]
  - Hyperlactacidaemia [Recovered/Resolved]
  - Tachycardia [Recovered/Resolved]
  - Acute hepatic failure [Recovered/Resolved]
  - Hypotension [Recovered/Resolved]
